FAERS Safety Report 7325778-9 (Version None)
Quarter: 2011Q1

REPORT INFORMATION
  Report Type: 
  Country: None (occurrence: None)
  Receive Date: 20110302
  Receipt Date: 20110221
  Transmission Date: 20110831
  Serious: Yes (Hospitalization, Other)
  Sender: FDA-Public Use
  Company Number: GB-ASTRAZENECA-2011SE06377

PATIENT
  Age: 714 Month
  Sex: Male

DRUGS (4)
  1. ATORVASTATIN [Concomitant]
     Dosage: 20, DAILY
  2. CASODEX [Suspect]
     Indication: PROSTATE CANCER
     Route: 048
     Dates: start: 20071211, end: 20071216
  3. OMEPRAZOLE [Concomitant]
     Dosage: 20, DAILY
  4. OLMESARTAN [Concomitant]
     Dosage: 20, DAILY

REACTIONS (3)
  - HEPATOTOXICITY [None]
  - HEPATIC FAILURE [None]
  - LIVER INJURY [None]
